FAERS Safety Report 20299930 (Version 2)
Quarter: 2022Q1

REPORT INFORMATION
  Report Type: Report from Study
  Country: US (occurrence: US)
  Receive Date: 20220105
  Receipt Date: 20220201
  Transmission Date: 20220424
  Serious: Yes (Other)
  Sender: FDA-Public Use
  Company Number: US-JNJFOC-20211260812

PATIENT
  Sex: Female

DRUGS (2)
  1. SIMPONI [Suspect]
     Active Substance: GOLIMUMAB
     Indication: Psoriatic arthropathy
     Route: 058
     Dates: start: 2009
  2. SIMPONI [Suspect]
     Active Substance: GOLIMUMAB
     Dosage: 0.5ML
     Route: 058
     Dates: start: 20211218

REACTIONS (6)
  - Cystitis [Not Recovered/Not Resolved]
  - Psoriatic arthropathy [Unknown]
  - Urinary retention [Unknown]
  - Rectal prolapse [Unknown]
  - Drug ineffective [Unknown]
  - Urethral prolapse [Unknown]

NARRATIVE: CASE EVENT DATE: 20090101
